FAERS Safety Report 12263011 (Version 4)
Quarter: 2016Q2

REPORT INFORMATION
  Report Type: Report from Study
  Country: US (occurrence: US)
  Receive Date: 20160413
  Receipt Date: 20160523
  Transmission Date: 20160815
  Serious: No
  Sender: FDA-Public Use
  Company Number: US-AMGEN-USASL2016044396

PATIENT
  Age: 50 Year
  Sex: Female

DRUGS (3)
  1. ENBREL [Suspect]
     Active Substance: ETANERCEPT
     Indication: RHEUMATOID ARTHRITIS
     Dosage: 50 MG, WEEKLY
     Route: 058
     Dates: start: 2016
  2. ENBREL [Suspect]
     Active Substance: ETANERCEPT
     Indication: RHEUMATOID VASCULITIS
     Dosage: 50 MG, QWK
     Route: 065
  3. ENBREL [Suspect]
     Active Substance: ETANERCEPT
     Dosage: 50 MG, QWK
     Route: 065
     Dates: start: 2016

REACTIONS (30)
  - Headache [Recovered/Resolved]
  - Injection site bruising [Unknown]
  - Sinusitis [Unknown]
  - Dizziness [Unknown]
  - Fatigue [Unknown]
  - Vision blurred [Unknown]
  - Diarrhoea [Unknown]
  - Feeling cold [Unknown]
  - Arthralgia [Unknown]
  - Nausea [Unknown]
  - Asthenia [Unknown]
  - Cough [Unknown]
  - Pyrexia [Not Recovered/Not Resolved]
  - Visual field defect [Unknown]
  - Injection site pain [Unknown]
  - Hypersensitivity [Unknown]
  - Eyelid oedema [Unknown]
  - Hot flush [Unknown]
  - Feeling abnormal [Unknown]
  - Injection site reaction [Unknown]
  - Injection site erythema [Unknown]
  - Decreased appetite [Unknown]
  - Aphthous ulcer [Unknown]
  - Eye discharge [Unknown]
  - Injection site pruritus [Unknown]
  - Injection site swelling [Unknown]
  - Joint swelling [Recovering/Resolving]
  - Joint effusion [Unknown]
  - Gastrooesophageal reflux disease [Unknown]
  - Peripheral swelling [Recovering/Resolving]

NARRATIVE: CASE EVENT DATE: 2016
